FAERS Safety Report 9674903 (Version 3)
Quarter: 2013Q4

REPORT INFORMATION
  Report Type: Spontaneous
  Country: JP (occurrence: JP)
  Receive Date: 20131107
  Receipt Date: 20131220
  Transmission Date: 20140711
  Serious: Yes (Other)
  Sender: FDA-Public Use
  Company Number: JP-JNJFOC-20131101477

PATIENT
  Age: 78 Year
  Sex: Female
  Weight: 33 kg

DRUGS (5)
  1. XARELTO [Suspect]
     Indication: CEREBROVASCULAR ACCIDENT PROPHYLAXIS
     Route: 048
     Dates: start: 20131012, end: 20131029
  2. XARELTO [Suspect]
     Indication: ATRIAL FIBRILLATION
     Route: 048
     Dates: start: 20131012, end: 20131029
  3. JANUVIA [Suspect]
     Indication: PRODUCT USED FOR UNKNOWN INDICATION
     Route: 048
     Dates: start: 20130725
  4. AMLODIPINE [Concomitant]
     Route: 048
     Dates: start: 20130920
  5. ARTIST [Concomitant]
     Route: 048
     Dates: start: 20130920

REACTIONS (3)
  - Flatulence [Recovering/Resolving]
  - Constipation [Recovering/Resolving]
  - Ileus [Recovering/Resolving]
